FAERS Safety Report 18565563 (Version 1)
Quarter: 2020Q4

REPORT INFORMATION
  Report Type: Spontaneous
  Country: US (occurrence: US)
  Receive Date: 20201201
  Receipt Date: 20201201
  Transmission Date: 20210114
  Serious: Yes (Disabling)
  Sender: FDA-Public Use
  Company Number: None

PATIENT
  Age: 75 Year
  Sex: Female
  Weight: 45 kg

DRUGS (9)
  1. CLARITIN [Concomitant]
     Active Substance: LORATADINE
  2. LOPERAMIDE [Concomitant]
     Active Substance: LOPERAMIDE
  3. MELATONIN [Concomitant]
     Active Substance: MELATONIN
  4. VITAMIN D [Concomitant]
     Active Substance: VITAMIN D NOS
  5. ELIQUIS [Suspect]
     Active Substance: APIXABAN
     Indication: ATRIAL FIBRILLATION
     Dosage: ?          QUANTITY:60 TABLET(S);?
     Route: 048
     Dates: start: 20201116
  6. HYOSCYAMINE. [Concomitant]
     Active Substance: HYOSCYAMINE
  7. COENZYME Q10 [Concomitant]
     Active Substance: DIETARY SUPPLEMENT\UBIDECARENONE
  8. ATENOLOL. [Concomitant]
     Active Substance: ATENOLOL
  9. DIGOXIN. [Concomitant]
     Active Substance: DIGOXIN

REACTIONS (1)
  - Diarrhoea [None]

NARRATIVE: CASE EVENT DATE: 20201118
